FAERS Safety Report 6520810-4 (Version None)
Quarter: 2009Q4

REPORT INFORMATION
  Report Type: 
  Country: None (occurrence: None)
  Receive Date: 20091229
  Receipt Date: 20091218
  Transmission Date: 20100525
  Serious: Yes (Other)
  Sender: FDA-Public Use
  Company Number: US-JNJFOC-20091205961

PATIENT
  Sex: Female

DRUGS (3)
  1. REMICADE [Suspect]
     Indication: CROHN'S DISEASE
     Dosage: DOSE AND FREQUENCY UNSPECIFIED
     Route: 042
  2. PREDNISONE [Concomitant]
  3. VICODIN [Concomitant]

REACTIONS (5)
  - DIZZINESS [None]
  - FISTULA [None]
  - HEADACHE [None]
  - PROCTALGIA [None]
  - TINNITUS [None]
